FAERS Safety Report 5145337-6 (Version None)
Quarter: 2006Q4

REPORT INFORMATION
  Report Type: 
  Country: None (occurrence: None)
  Receive Date: 20061101
  Receipt Date: 20061016
  Transmission Date: 20070319
  Serious: Yes (Other)
  Sender: FDA-Public Use
  Company Number: 8018668

PATIENT
  Sex: Female

DRUGS (2)
  1. KEPPRA [Suspect]
  2. TEGRETOL [Concomitant]

REACTIONS (3)
  - BONE DISORDER [None]
  - GINGIVITIS [None]
  - TOOTH LOSS [None]
